FAERS Safety Report 4793759-5 (Version None)
Quarter: 2005Q4

REPORT INFORMATION
  Report Type: 
  Country: None (occurrence: None)
  Receive Date: 20051011
  Receipt Date: 20050930
  Transmission Date: 20060501
  Serious: Yes (Other)
  Sender: FDA-Public Use
  Company Number: US-JNJFOC-20051000547

PATIENT
  Sex: Female
  Weight: 40.37 kg

DRUGS (11)
  1. REMICADE [Suspect]
     Indication: CROHN'S DISEASE
     Route: 042
  2. VERAPAMIL [Concomitant]
  3. PENTASA [Concomitant]
     Indication: ANTIINFLAMMATORY THERAPY
  4. ZELNORM [Concomitant]
  5. HYDROCODONE [Concomitant]
     Indication: PAIN
  6. PREVACID [Concomitant]
  7. AZASAN [Concomitant]
  8. SYNERGEL [Concomitant]
  9. SYNERGEL [Concomitant]
  10. SYNERGEL [Concomitant]
     Indication: NAUSEA
  11. TUMS [Concomitant]

REACTIONS (5)
  - CHEST DISCOMFORT [None]
  - DYSPNOEA [None]
  - HEART RATE IRREGULAR [None]
  - INFUSION RELATED REACTION [None]
  - PALPITATIONS [None]
